FAERS Safety Report 23712758 (Version 1)
Quarter: 2024Q2

REPORT INFORMATION
  Report Type: Spontaneous
  Country: US (occurrence: None)
  Receive Date: 20240405
  Receipt Date: 20240405
  Transmission Date: 20240716
  Serious: No
  Sender: FDA-Public Use
  Company Number: None

PATIENT
  Age: 43 Year
  Sex: Male
  Weight: 93.6 kg

DRUGS (10)
  1. OZEMPIC [Suspect]
     Active Substance: SEMAGLUTIDE
     Indication: Weight decreased
     Dates: start: 20240201, end: 20240401
  2. LAMICTAL [Concomitant]
  3. LEXAPRO [Concomitant]
  4. PROPECIA [Concomitant]
  5. TRUVADA [Concomitant]
  6. TIROSINT [Concomitant]
     Active Substance: LEVOTHYROXINE SODIUM
  7. TESTOSTERONE [Concomitant]
  8. cyoionate [Concomitant]
  9. LORAZEPAM [Concomitant]
  10. DIPHENHYDRAMINE [Concomitant]

REACTIONS (5)
  - Affective disorder [None]
  - Anxiety [None]
  - Depression [None]
  - Obsessive thoughts [None]
  - Therapy cessation [None]

NARRATIVE: CASE EVENT DATE: 20240401
